FAERS Safety Report 16918709 (Version 1)
Quarter: 2019Q4

REPORT INFORMATION
  Report Type: Spontaneous
  Country: GB (occurrence: GB)
  Receive Date: 20191015
  Receipt Date: 20191015
  Transmission Date: 20200122
  Serious: Yes (Other)
  Sender: FDA-Public Use
  Company Number: GB-MYLANLABS-2019M1095691

PATIENT
  Age: 39 Year
  Sex: Female

DRUGS (3)
  1. OLANZAPINE. [Suspect]
     Active Substance: OLANZAPINE
     Indication: PRODUCT USED FOR UNKNOWN INDICATION
     Dosage: 5 MILLIGRAM, QD, (NIGHT)
     Route: 065
  2. DESOGESTREL [Concomitant]
     Active Substance: DESOGESTREL
     Dosage: 75 MICROGRAM, QD
  3. ZOPICLONE [Concomitant]
     Active Substance: ZOPICLONE
     Dosage: 7.5 MILLIGRAM, QD, NIGHT

REACTIONS (2)
  - Drug eruption [Recovered/Resolved]
  - Angioedema [Recovered/Resolved]
